FAERS Safety Report 7237793-4 (Version None)
Quarter: 2011Q1

REPORT INFORMATION
  Report Type: 
  Country: None (occurrence: None)
  Receive Date: 20110119
  Receipt Date: 20110119
  Transmission Date: 20110831
  Serious: Yes (Life-Threatening)
  Sender: FDA-Public Use
  Company Number: None

PATIENT
  Sex: Female
  Weight: 80.7403 kg

DRUGS (4)
  1. SULFA [Concomitant]
  2. MICORBIC [Concomitant]
  3. FLAGYL [Suspect]
     Indication: PELVIC INFECTION
     Dosage: 1 2 X DAY
     Dates: start: 20101230, end: 20110102
  4. GEODON [Concomitant]

REACTIONS (12)
  - INSOMNIA [None]
  - UNEVALUABLE EVENT [None]
  - JOINT SWELLING [None]
  - PYREXIA [None]
  - OEDEMA PERIPHERAL [None]
  - DIARRHOEA [None]
  - EYE PRURITUS [None]
  - DECREASED APPETITE [None]
  - SKIN BURNING SENSATION [None]
  - PAIN [None]
  - NAUSEA [None]
  - HYPOAESTHESIA [None]
